FAERS Safety Report 5291327-2 (Version None)
Quarter: 2007Q2

REPORT INFORMATION
  Report Type: 
  Country: None (occurrence: None)
  Receive Date: 20070403
  Receipt Date: 20070320
  Transmission Date: 20071010
  Serious: Yes (Death)
  Sender: FDA-Public Use
  Company Number: 15121

PATIENT
  Age: 29 Year
  Sex: Male

DRUGS (14)
  1. ETOPOSIDE [Suspect]
     Indication: TESTICULAR CANCER METASTATIC
     Dosage: 950 MG DAILY
     Dates: start: 20061010, end: 20061013
  2. CARBOPLATIN [Suspect]
     Indication: TESTICULAR CANCER METASTATIC
     Dosage: 1250 MG DAILY
     Dates: start: 20061010, end: 20061013
  3. CYCLOPHOSPHAMIDE [Suspect]
     Indication: TESTICULAR CANCER METASTATIC
     Dosage: 3000 MG DAILY
     Dates: start: 20061010, end: 20061013
  4. ZOFRAN [Concomitant]
  5. DUSSELDORF BLANDING [Concomitant]
  6. MESNA [Concomitant]
  7. FORTUM /00559701/. [Concomitant]
  8. MYCOSTATIN [Concomitant]
  9. PARACET [Concomitant]
  10. LARGACTIL /00011902/. [Concomitant]
  11. NYCOPLUS MAGNESIUM [Concomitant]
  12. EMEND [Concomitant]
  13. VIVAL /00016001/. [Concomitant]
  14. FORTECOTIN /00016001/. [Concomitant]

REACTIONS (15)
  - ANURIA [None]
  - CARDIAC ARREST [None]
  - CARDIAC TAMPONADE [None]
  - DEHYDRATION [None]
  - DIALYSIS [None]
  - GASTRITIS [None]
  - HYPOTENSION [None]
  - METASTASES TO LUNG [None]
  - NEPHROPATHY TOXIC [None]
  - PERICARDIAL HAEMORRHAGE [None]
  - PERICARDITIS [None]
  - PLEURAL EFFUSION [None]
  - RENAL FAILURE ACUTE [None]
  - RENAL INFARCT [None]
  - TACHYCARDIA [None]
